FAERS Safety Report 5080529-6 (Version None)
Quarter: 2006Q3

REPORT INFORMATION
  Report Type: 
  Country: None (occurrence: None)
  Receive Date: 20060720
  Receipt Date: 20050610
  Transmission Date: 20061208
  Serious: Yes (Hospitalization)
  Sender: FDA-Public Use
  Company Number: 2003147864US

PATIENT
  Age: 43 Year
  Sex: Female

DRUGS (1)
  1. CELEBREX [Suspect]
     Indication: BACK PAIN
     Dosage: 100 MG (100 MG, 1 IN 1 D)
     Dates: start: 19990401

REACTIONS (6)
  - ASTHENIA [None]
  - CHEST PAIN [None]
  - HYPOAESTHESIA [None]
  - NAUSEA [None]
  - OEDEMA PERIPHERAL [None]
  - VOMITING [None]
